FAERS Safety Report 8664117 (Version 2)
Quarter: 2013Q1

REPORT INFORMATION
  Report Type: Report from Study
  Country: IT (occurrence: IT)
  Receive Date: 20120713
  Receipt Date: 20130125
  Transmission Date: 20140127
  Serious: Yes (Life-Threatening, Hospitalization)
  Sender: FDA-Public Use
  Company Number: PHHO2012IT010378

PATIENT
  Age: 60 Year
  Sex: Male

DRUGS (7)
  1. AMN107 [Suspect]
     Indication: GASTROINTESTINAL STROMAL TUMOUR
     Dosage: 200 MG, BID
     Dates: end: 20101011
  2. AMN107 [Suspect]
     Dosage: 200 MG, BID
     Dates: start: 20101023
  3. AMN107 [Suspect]
     Dosage: 400 MG, BID
     Dates: start: 20120216, end: 20120624
  4. METFORMINA [Concomitant]
     Indication: TYPE 2 DIABETES MELLITUS
     Dosage: UNK
     Dates: start: 200512
  5. TRIATEC [Concomitant]
     Indication: HYPERTENSION
     Dosage: UNK
     Dates: start: 201011
  6. CONGESCOR [Concomitant]
     Indication: MYOCARDIAL ISCHAEMIA
     Dosage: UNK
     Dates: start: 201011
  7. TORVAST [Concomitant]
     Indication: MYOCARDIAL ISCHAEMIA
     Dosage: UNK
     Dates: start: 201011

REACTIONS (1)
  - Acute coronary syndrome [Recovered/Resolved]
